FAERS Safety Report 9399172 (Version 1)
Quarter: 2013Q3

REPORT INFORMATION
  Report Type: Spontaneous
  Country: GB (occurrence: None)
  Receive Date: 20130709
  Receipt Date: 20130709
  Transmission Date: 20140515
  Serious: Yes (Hospitalization, Other)
  Sender: FDA-Public Use
  Company Number: 2013P1011014

PATIENT
  Age: 26 Year
  Sex: Female

DRUGS (4)
  1. CIPROFLOXACIN [Suspect]
     Indication: URINARY TRACT INFECTION
     Dates: start: 201305
  2. T500 FURY [Suspect]
     Indication: NUTRITIONAL SUPPLEMENTATION
  3. MELANOTAN [Suspect]
     Indication: TANNING
  4. ANALGESIC [Concomitant]

REACTIONS (7)
  - Abdominal pain upper [None]
  - Biliary colic [None]
  - Alanine aminotransferase increased [None]
  - Hepatotoxicity [None]
  - Blood alkaline phosphatase increased [None]
  - Gamma-glutamyltransferase increased [None]
  - Aspartate aminotransferase increased [None]
